FAERS Safety Report 22537883 (Version 2)
Quarter: 2023Q2

REPORT INFORMATION
  Report Type: Spontaneous
  Country: HU (occurrence: HU)
  Receive Date: 20230608
  Receipt Date: 20230628
  Transmission Date: 20230722
  Serious: Yes (Life-Threatening, Hospitalization)
  Sender: FDA-Public Use
  Company Number: HU-AMGEN-HUNSP2023089953

PATIENT
  Age: 61 Year
  Sex: Female

DRUGS (12)
  1. DEXAMETHASONE [Suspect]
     Active Substance: DEXAMETHASONE
     Indication: Plasma cell myeloma
     Dosage: DRD THERAPY (GIVEN IN BETWEEN MAY/2020 TO AUG/2021)
     Route: 065
  2. DEXAMETHASONE [Suspect]
     Active Substance: DEXAMETHASONE
     Indication: Plasma cell myeloma
     Dosage: VTD THERAPY
     Route: 065
  3. DEXAMETHASONE [Suspect]
     Active Substance: DEXAMETHASONE
     Dosage: VRD AND KRD THERAPY (GIVEN IN BETWEEN MAY/2020 TO AUG/2021)
     Route: 065
  4. MELPHALAN [Suspect]
     Active Substance: MELPHALAN
     Indication: Plasma cell myeloma
     Dosage: MELPHALAN CONDITIONING
     Route: 065
  5. MELPHALAN [Suspect]
     Active Substance: MELPHALAN
     Dosage: VMP THERAPY (GIVEN IN BETWEEN MAY/2020 TO AUG/2021)
     Route: 065
  6. BORTEZOMIB [Suspect]
     Active Substance: BORTEZOMIB
     Indication: Plasma cell myeloma
     Dosage: VTD THERAPY
     Route: 065
  7. BORTEZOMIB [Suspect]
     Active Substance: BORTEZOMIB
     Dosage: VMP, VRD THERAPY (GIVEN IN BETWEEN MAY/2020 TO AUG/2021)
     Route: 065
  8. PREDNISONE [Suspect]
     Active Substance: PREDNISONE
     Indication: Plasma cell myeloma
     Dosage: VMP THERAPY (GIVEN IN BETWEEN MAY/2020 TO AUG/2021)
     Route: 065
  9. LENALIDOMIDE [Suspect]
     Active Substance: LENALIDOMIDE
     Indication: Plasma cell myeloma
     Dosage: VRD, KRD, DRD THERAPY (GIVEN IN BETWEEN MAY/2020 TO AUG/2021)
     Route: 065
  10. CARFILZOMIB [Suspect]
     Active Substance: CARFILZOMIB
     Indication: Plasma cell myeloma
     Dosage: KRD THERAPY (GIVEN IN BETWEEN MAY/2020 TO AUG/2021)
     Route: 065
  11. DARATUMUMAB [Suspect]
     Active Substance: DARATUMUMAB
     Indication: Plasma cell myeloma
     Dosage: DRD THERAPY (GIVEN IN BETWEEN MAY/2020 TO AUG/2021)
     Route: 065
  12. THALIDOMIDE [Suspect]
     Active Substance: THALIDOMIDE
     Indication: Plasma cell myeloma
     Dosage: (VTD) INDUCTION THERAPY
     Route: 065

REACTIONS (2)
  - Meningitis listeria [Not Recovered/Not Resolved]
  - Listeria sepsis [Not Recovered/Not Resolved]

NARRATIVE: CASE EVENT DATE: 20210101
